FAERS Safety Report 11952885 (Version 4)
Quarter: 2016Q1

REPORT INFORMATION
  Report Type: Spontaneous
  Country: US (occurrence: US)
  Receive Date: 20160126
  Receipt Date: 20160304
  Transmission Date: 20160526
  Serious: Yes (Hospitalization, Other)
  Sender: FDA-Public Use
  Company Number: US-009507513-1601USA007610

PATIENT
  Age: 86 Year
  Sex: Female
  Weight: 73.9 kg

DRUGS (20)
  1. NORCO [Concomitant]
     Active Substance: ACETAMINOPHEN\HYDROCODONE BITARTRATE
  2. COREG [Concomitant]
     Active Substance: CARVEDILOL
  3. CYMBALTA [Concomitant]
     Active Substance: DULOXETINE HYDROCHLORIDE
  4. LIDODERM [Concomitant]
     Active Substance: LIDOCAINE
  5. COUMADIN [Concomitant]
     Active Substance: WARFARIN SODIUM
  6. LIPITOR [Concomitant]
     Active Substance: ATORVASTATIN CALCIUM
  7. NITROGLYCERIN. [Concomitant]
     Active Substance: NITROGLYCERIN
  8. PROTONIX [Concomitant]
     Active Substance: PANTOPRAZOLE SODIUM
  9. JANUVIA [Suspect]
     Active Substance: SITAGLIPTIN PHOSPHATE
     Dosage: 100 MG, QD
     Route: 048
  10. SYNTHROID [Concomitant]
     Active Substance: LEVOTHYROXINE SODIUM
  11. TRAMADOL HYDROCHLORIDE. [Concomitant]
     Active Substance: TRAMADOL HYDROCHLORIDE
  12. CLARITIN [Concomitant]
     Active Substance: LORATADINE
  13. IMDUR [Concomitant]
     Active Substance: ISOSORBIDE MONONITRATE
  14. NOVOLOG [Suspect]
     Active Substance: INSULIN ASPART
     Indication: DIABETES MELLITUS
     Dosage: CHRONIC, DOSE REPORTED AS: SSI, TID
     Route: 058
  15. LANTUS [Suspect]
     Active Substance: INSULIN GLARGINE
     Dosage: CHRONIC, 25 UNITS, QD
     Route: 058
  16. PROVENTIL [Concomitant]
     Active Substance: ALBUTEROL
  17. AMLODIPINE [Concomitant]
     Active Substance: AMLODIPINE BESYLATE
  18. LASIX [Concomitant]
     Active Substance: FUROSEMIDE
  19. LANTUS [Suspect]
     Active Substance: INSULIN GLARGINE
     Indication: DIABETES MELLITUS
     Dosage: CHRONIC, 60 UNITS, BID
     Route: 058
  20. NEURONTIN [Concomitant]
     Active Substance: GABAPENTIN

REACTIONS (6)
  - Hypophagia [Not Recovered/Not Resolved]
  - Blood insulin increased [Recovered/Resolved]
  - Somnolence [Not Recovered/Not Resolved]
  - Cardiac pacemaker insertion [Unknown]
  - Dyspnoea [Not Recovered/Not Resolved]
  - Hypoglycaemia [Recovered/Resolved]

NARRATIVE: CASE EVENT DATE: 20140901
